FAERS Safety Report 16197583 (Version 1)
Quarter: 2019Q2

REPORT INFORMATION
  Report Type: Spontaneous
  Country: US (occurrence: US)
  Receive Date: 20190414
  Receipt Date: 20190414
  Transmission Date: 20190711
  Serious: Yes (Hospitalization)
  Sender: FDA-Public Use
  Company Number: None

PATIENT
  Age: 30 Year
  Sex: Male
  Weight: 98.5 kg

DRUGS (16)
  1. DILTIAZEM. [Concomitant]
     Active Substance: DILTIAZEM
  2. FOLIC ACID. [Concomitant]
     Active Substance: FOLIC ACID
  3. INSULIN LISPRO [Concomitant]
     Active Substance: INSULIN LISPRO
  4. MIRALAX [Concomitant]
     Active Substance: POLYETHYLENE GLYCOL 3350
  5. PREDNISONE. [Concomitant]
     Active Substance: PREDNISONE
  6. FERROUS GLUCONATE TABLET [Concomitant]
  7. PANTOPRAZOLE [Concomitant]
     Active Substance: PANTOPRAZOLE
  8. ATORVASTATIN [Concomitant]
     Active Substance: ATORVASTATIN
  9. VITAMIN B [Concomitant]
     Active Substance: VITAMIN B
  10. METOPROLOL TARTRATE. [Concomitant]
     Active Substance: METOPROLOL TARTRATE
  11. SEVELAMER [Concomitant]
     Active Substance: SEVELAMER
  12. VALTREX [Concomitant]
     Active Substance: VALACYCLOVIR HYDROCHLORIDE
  13. CAPLACIZUMAB. [Suspect]
     Active Substance: CAPLACIZUMAB
     Indication: THROMBOTIC THROMBOCYTOPENIC PURPURA
     Route: 058
     Dates: start: 20190319
  14. SUCRALFATE. [Concomitant]
     Active Substance: SUCRALFATE
  15. TRAMADOL. [Concomitant]
     Active Substance: TRAMADOL
  16. INSULIN GLARGINE [Concomitant]
     Active Substance: INSULIN GLARGINE

REACTIONS (1)
  - Gastrointestinal haemorrhage [None]

NARRATIVE: CASE EVENT DATE: 20190407
